FAERS Safety Report 25602989 (Version 1)
Quarter: 2025Q3

REPORT INFORMATION
  Report Type: Spontaneous
  Country: US (occurrence: US)
  Receive Date: 20250724
  Receipt Date: 20250724
  Transmission Date: 20251021
  Serious: No
  Sender: GALPHARM INTERNATIONAL
  Company Number: US-PERRIGO-24US008148

PATIENT
  Age: 29 Year
  Sex: Male

DRUGS (1)
  1. MOTRIN IB [Suspect]
     Active Substance: IBUPROFEN
     Indication: Toothache
     Route: 048
     Dates: start: 20240825, end: 202408

REACTIONS (1)
  - Diarrhoea [Recovering/Resolving]

NARRATIVE: CASE EVENT DATE: 20240826
